FAERS Safety Report 11853142 (Version 2)
Quarter: 2016Q1

REPORT INFORMATION
  Report Type: Report from Study
  Country: US (occurrence: US)
  Receive Date: 20151218
  Receipt Date: 20160212
  Transmission Date: 20160526
  Serious: Yes (Hospitalization)
  Sender: FDA-Public Use
  Company Number: US-ROCHE-1677269

PATIENT
  Age: 50 Year
  Sex: Female
  Weight: 71.6 kg

DRUGS (15)
  1. ACETAMINOPHEN. [Concomitant]
     Active Substance: ACETAMINOPHEN
     Route: 065
  2. KENALOG (AUSTRALIA) [Concomitant]
     Dosage: 0.11
     Route: 061
  3. VEMURAFENIB [Suspect]
     Active Substance: VEMURAFENIB
     Route: 048
     Dates: start: 20151214
  4. PREDNISONE. [Concomitant]
     Active Substance: PREDNISONE
     Indication: RASH ERYTHEMATOUS
     Route: 065
     Dates: start: 20120817, end: 20120822
  5. LISINOPRIL. [Concomitant]
     Active Substance: LISINOPRIL
     Indication: HYPERTENSION
     Route: 065
     Dates: start: 20121023
  6. IBUPROFEN. [Concomitant]
     Active Substance: IBUPROFEN
     Indication: PYREXIA
     Route: 065
     Dates: start: 20130425
  7. IBUPROFEN. [Concomitant]
     Active Substance: IBUPROFEN
     Indication: MYALGIA
  8. COBIMETINIB [Suspect]
     Active Substance: COBIMETINIB
     Route: 048
     Dates: start: 20151214
  9. VEMURAFENIB [Suspect]
     Active Substance: VEMURAFENIB
     Indication: METASTATIC MALIGNANT MELANOMA
     Dosage: DATE OF LAST DOSE PRIOR TO SAE: 09/DEC/2015
     Route: 048
     Dates: start: 20151113
  10. PREDNISONE. [Concomitant]
     Active Substance: PREDNISONE
     Indication: MYALGIA
     Route: 048
     Dates: start: 20140530
  11. ARMOUR THYROID [Concomitant]
     Active Substance: THYROID, PORCINE
     Indication: HYPOTHYROIDISM
     Route: 065
     Dates: start: 2000
  12. PHOSPHA 250 NEUTRAL [Concomitant]
     Active Substance: POTASSIUM PHOSPHATE, MONOBASIC\SODIUM PHOSPHATE, DIBASIC, ANHYDROUS\SODIUM PHOSPHATE, MONOBASIC, MONOHYDRATE
     Indication: HYPOPHOSPHATAEMIA
     Route: 065
     Dates: start: 20131018
  13. PHOSPHA 250 NEUTRAL [Concomitant]
     Active Substance: POTASSIUM PHOSPHATE, MONOBASIC\SODIUM PHOSPHATE, DIBASIC, ANHYDROUS\SODIUM PHOSPHATE, MONOBASIC, MONOHYDRATE
     Route: 065
     Dates: start: 20130624, end: 20130709
  14. PHOSPHA 250 NEUTRAL [Concomitant]
     Active Substance: POTASSIUM PHOSPHATE, MONOBASIC\SODIUM PHOSPHATE, DIBASIC, ANHYDROUS\SODIUM PHOSPHATE, MONOBASIC, MONOHYDRATE
     Route: 065
     Dates: start: 20120912, end: 20130624
  15. COBIMETINIB [Suspect]
     Active Substance: COBIMETINIB
     Indication: METASTATIC MALIGNANT MELANOMA
     Dosage: DATE OF LAST DOSE PRIOR TO SAE: 09/DEC/2015
     Route: 048
     Dates: start: 20151113

REACTIONS (1)
  - Renal failure [Not Recovered/Not Resolved]

NARRATIVE: CASE EVENT DATE: 20151209
